FAERS Safety Report 13778740 (Version 1)
Quarter: 2017Q3

REPORT INFORMATION
  Report Type: Spontaneous
  Country: US (occurrence: US)
  Receive Date: 20170721
  Receipt Date: 20170721
  Transmission Date: 20171127
  Serious: No
  Sender: FDA-Public Use
  Company Number: US-PFIZER INC-2017308315

PATIENT
  Age: 74 Year
  Sex: Female

DRUGS (2)
  1. METHOTREXATE SODIUM. [Suspect]
     Active Substance: METHOTREXATE SODIUM
     Dosage: 15 MG, WEEKLY (6 TABS)
     Route: 048
  2. XELJANZ XR [Suspect]
     Active Substance: TOFACITINIB CITRATE
     Dosage: 11 MG, UNK

REACTIONS (16)
  - Arthralgia [Unknown]
  - Fatigue [Unknown]
  - Nausea [Unknown]
  - Vomiting [Unknown]
  - Myalgia [Unknown]
  - Spinal osteoarthritis [Unknown]
  - Synovitis [Unknown]
  - Muscle spasms [Unknown]
  - Joint stiffness [Unknown]
  - Gait disturbance [Unknown]
  - Vertebral osteophyte [Unknown]
  - Joint swelling [Unknown]
  - Joint range of motion decreased [Unknown]
  - Osteoporosis [Unknown]
  - Tachycardia [Unknown]
  - Abdominal pain [Unknown]
